FAERS Safety Report 7406934-8 (Version None)
Quarter: 2011Q2

REPORT INFORMATION
  Report Type: 
  Country: None (occurrence: None)
  Receive Date: 20110406
  Receipt Date: 20110406
  Transmission Date: 20111010
  Serious: Yes (Disabling, Other)
  Sender: FDA-Public Use
  Company Number: None

PATIENT
  Sex: Female
  Weight: 87.5442 kg

DRUGS (2)
  1. VENLAFAXINE HCL [Suspect]
     Indication: ANXIETY
     Dosage: 1X DAY 1X DAY 2 PILLS
     Dates: start: 20100809, end: 20100901
  2. VENLAFAXINE HCL [Suspect]
     Indication: DEPRESSION
     Dosage: 1X DAY 1X DAY 2 PILLS
     Dates: start: 20100809, end: 20100901

REACTIONS (2)
  - ANXIETY [None]
  - DISORIENTATION [None]
